FAERS Safety Report 23195645 (Version 1)
Quarter: 2023Q4

REPORT INFORMATION
  Report Type: Spontaneous
  Country: US (occurrence: CA)
  Receive Date: 20231117
  Receipt Date: 20231117
  Transmission Date: 20240110
  Serious: Yes (Other)
  Sender: FDA-Public Use
  Company Number: US-ALK-ABELLO A/S-2023AA004132

PATIENT

DRUGS (2)
  1. STERILE DILUENT FOR ALLERGENIC EXTRACT NOS [Suspect]
     Active Substance: ALBUMIN HUMAN OR GLYCERIN OR PHENOL
     Indication: Product used for unknown indication
     Dosage: UNK
     Dates: start: 202304
  2. STERILE DILUENT FOR ALLERGENIC EXTRACT NOS [Suspect]
     Active Substance: ALBUMIN HUMAN OR GLYCERIN OR PHENOL
     Dosage: UNK
     Dates: start: 202304

REACTIONS (2)
  - Anaphylactic reaction [Recovered/Resolved]
  - Local reaction [Unknown]

NARRATIVE: CASE EVENT DATE: 20230919
